FAERS Safety Report 9209792 (Version 1)
Quarter: 2013Q1

REPORT INFORMATION
  Report Type: Spontaneous
  Country: US (occurrence: None)
  Receive Date: 20120820
  Receipt Date: 20120820
  Transmission Date: 20140127
  Serious: No
  Sender: FDA-Public Use
  Company Number: 1000030619

PATIENT
  Age: 56 Year
  Sex: Female

DRUGS (7)
  1. VIIBRYD [Suspect]
     Indication: DEPRESSION
     Route: 048
     Dates: start: 201111, end: 2011
  2. METFORMIN (METFORMIN)(METFORMIN) [Concomitant]
  3. NEXIUM (ESOMEPRAZOLE) (ESOMEPRAZOLE) [Concomitant]
  4. LISINOPRIL (LISINOPRIL) (LISINOPRIL) [Concomitant]
  5. VIVELLE-DOT (ESTRADOIL) (ESTRADOIL) [Concomitant]
  6. POTASSIUM (POTASSIUM) (POTASSIUM) [Concomitant]
  7. IRON (IRON) (IRON) [Concomitant]

REACTIONS (2)
  - Weight increased [None]
  - Depression [None]
